FAERS Safety Report 14330131 (Version 5)
Quarter: 2021Q1

REPORT INFORMATION
  Report Type: Spontaneous
  Country: US (occurrence: US)
  Receive Date: 20171227
  Receipt Date: 20210219
  Transmission Date: 20210419
  Serious: Yes (Other)
  Sender: FDA-Public Use
  Company Number: US-BIOMARINAP-US-2015-105984

PATIENT
  Age: 48 Year
  Sex: Male

DRUGS (4)
  1. ALDURAZYME [Suspect]
     Active Substance: LARONIDASE
     Indication: MUCOPOLYSACCHARIDOSIS I
     Dosage: UNK
     Route: 041
     Dates: start: 20040218
  2. ALDURAZYME [Suspect]
     Active Substance: LARONIDASE
     Dosage: 75.4 MILLIGRAM
     Route: 041
     Dates: start: 20150324
  3. ALDURAZYME [Suspect]
     Active Substance: LARONIDASE
     Dosage: UNK
     Route: 041
     Dates: start: 20171114
  4. ALDURAZYME [Suspect]
     Active Substance: LARONIDASE
     Dosage: 55.1 MILLIGRAM, QW
     Route: 042
     Dates: start: 20150401

REACTIONS (4)
  - Cough [Recovered/Resolved]
  - Chest pain [Recovered/Resolved]
  - Weight decreased [Recovering/Resolving]
  - Weight increased [Recovered/Resolved]

NARRATIVE: CASE EVENT DATE: 201403
